FAERS Safety Report 6716847-2 (Version None)
Quarter: 2010Q2

REPORT INFORMATION
  Report Type: 
  Country: None (occurrence: None)
  Receive Date: 20100510
  Receipt Date: 20100506
  Transmission Date: 20101027
  Serious: Yes (Death, Hospitalization)
  Sender: FDA-Public Use
  Company Number: FR-BAYER-201011139GPV

PATIENT
  Age: 80 Year
  Sex: Male
  Weight: 58 kg

DRUGS (10)
  1. NEXAVAR [Suspect]
     Indication: HEPATIC NEOPLASM MALIGNANT
     Route: 048
     Dates: start: 20091201, end: 20091216
  2. FLECAINIDE ACETATE [Concomitant]
     Route: 048
     Dates: start: 20090401
  3. NEXIUM [Concomitant]
     Route: 048
     Dates: start: 20090601
  4. BIPERIDYS [Concomitant]
     Route: 048
     Dates: start: 20060201
  5. DIALGIREX [Concomitant]
     Dosage: 6 CP
     Route: 048
     Dates: start: 20100301, end: 20100309
  6. DURAGESIC-100 [Concomitant]
     Route: 048
     Dates: start: 20100309, end: 20100312
  7. PARACETAMOL [Concomitant]
     Route: 048
     Dates: start: 20100309, end: 20100312
  8. BION [Concomitant]
     Indication: MEDICAL DIET
     Route: 048
     Dates: start: 20090708
  9. TIMOPTOL [Concomitant]
     Indication: GLAUCOMA
     Route: 047
     Dates: start: 20090708
  10. PREVISCAN [Concomitant]
     Dates: start: 20090401

REACTIONS (2)
  - HEPATIC NEOPLASM MALIGNANT [None]
  - TOXIC SKIN ERUPTION [None]
